FAERS Safety Report 15328580 (Version 1)
Quarter: 2018Q3

REPORT INFORMATION
  Report Type: Spontaneous
  Country: US (occurrence: US)
  Receive Date: 20180829
  Receipt Date: 20180829
  Transmission Date: 20181010
  Serious: No
  Sender: FDA-Public Use
  Company Number: US-009507513-1007USA01934

PATIENT
  Sex: Female

DRUGS (5)
  1. TRUVADA [Suspect]
     Active Substance: EMTRICITABINE\TENOFOVIR DISOPROXIL FUMARATE
  2. PREZISTA [Suspect]
     Active Substance: DARUNAVIR ETHANOLATE
  3. NORVIR [Suspect]
     Active Substance: RITONAVIR
  4. ISENTRESS [Suspect]
     Active Substance: RALTEGRAVIR POTASSIUM
     Dosage: UNK
     Route: 048
  5. INTELENCE [Suspect]
     Active Substance: ETRAVIRINE

REACTIONS (1)
  - Maternal exposure during pregnancy [Recovered/Resolved]
